FAERS Safety Report 7642971-6 (Version None)
Quarter: 2011Q3

REPORT INFORMATION
  Report Type: 
  Country: None (occurrence: None)
  Receive Date: 20110728
  Receipt Date: 20110721
  Transmission Date: 20111222
  Serious: Yes (Other)
  Sender: FDA-Public Use
  Company Number: US-BAYER-2011-064711

PATIENT
  Sex: Male

DRUGS (1)
  1. VARDENAFIL HYDROCHLORIDE (ORAL) [Suspect]

REACTIONS (1)
  - OPTIC NEURITIS [None]
